FAERS Safety Report 8847008 (Version 1)
Quarter: 2012Q4

REPORT INFORMATION
  Report Type: Report from Study
  Country: FR (occurrence: FR)
  Receive Date: 20121018
  Receipt Date: 20121018
  Transmission Date: 20130627
  Serious: Yes (Other)
  Sender: FDA-Public Use
  Company Number: FR-ASTELLAS-2012EU009118

PATIENT
  Sex: Female
  Weight: 70 kg

DRUGS (1)
  1. SOLIFENACIN [Suspect]
     Dosage: 5 mg, UID/QD
     Route: 048

REACTIONS (1)
  - Anuria [Unknown]
